FAERS Safety Report 9426376 (Version 2)
Quarter: 2013Q3

REPORT INFORMATION
  Report Type: Spontaneous
  Country: US (occurrence: US)
  Receive Date: 20130730
  Receipt Date: 20130815
  Transmission Date: 20140515
  Serious: No
  Sender: FDA-Public Use
  Company Number: US-009507513-1307USA014537

PATIENT
  Age: 53 Year
  Sex: Female
  Weight: 72.52 kg

DRUGS (9)
  1. VICTRELIS [Suspect]
     Indication: HEPATITIS C
     Dosage: 800 MG, TID
     Route: 048
     Dates: start: 20130721
  2. REBETOL [Suspect]
     Indication: HEPATITIS C
     Dosage: 600 MG, QAM
     Route: 048
  3. REBETOL [Suspect]
     Dosage: 400 MG, QPM
     Route: 048
  4. PEGASYS [Suspect]
     Indication: HEPATITIS C
     Dosage: 180 MICROGRAM, QW
  5. CALTRATE (CALCIUM CARBONATE (+) CHOLECALCIFEROL) [Concomitant]
  6. OMEGA-3 MARINE TRIGLYCERIDES [Concomitant]
  7. VITAMINS (UNSPECIFIED) [Concomitant]
  8. ASCORBIC ACID [Concomitant]
  9. WELLBUTRIN [Concomitant]

REACTIONS (1)
  - Neutropenia [Not Recovered/Not Resolved]
